FAERS Safety Report 8231258-9 (Version None)
Quarter: 2012Q1

REPORT INFORMATION
  Report Type: 
  Country: None (occurrence: None)
  Receive Date: 20120323
  Receipt Date: 20120313
  Transmission Date: 20120608
  Serious: Yes (Other)
  Sender: FDA-Public Use
  Company Number: FR-AMGEN-FRASP2012017225

PATIENT
  Age: 55 Year
  Sex: Female

DRUGS (6)
  1. CLOBETASOL PROPIONATE [Concomitant]
     Indication: PSORIASIS
     Dosage: 500 MUG/G
     Route: 061
  2. POTASSIUM CHLORIDE [Concomitant]
     Dosage: 1 DF, 1X/DAY
     Route: 048
  3. ENBREL [Suspect]
     Indication: PSORIASIS
     Dosage: 50 MG, 2X/WEEK
     Route: 058
     Dates: start: 20110913, end: 20111115
  4. ENBREL [Suspect]
     Indication: RHEUMATOID ARTHRITIS
     Dosage: 50 MG, WEEKLY
     Dates: start: 20111116, end: 20120101
  5. BETAMETHASONE W/CALCIPOTRIOL [Concomitant]
     Indication: PSORIASIS
     Dosage: 50 MUG/0.5 MG/G
     Route: 061
  6. PREDNISONE TAB [Concomitant]
     Dosage: 5 MG, 1X/DAY

REACTIONS (1)
  - SPONTANEOUS HAEMATOMA [None]
